FAERS Safety Report 8448387-7 (Version None)
Quarter: 2012Q2

REPORT INFORMATION
  Report Type: 
  Country: None (occurrence: None)
  Receive Date: 20120619
  Receipt Date: 20120614
  Transmission Date: 20120825
  Serious: Yes (Hospitalization)
  Sender: FDA-Public Use
  Company Number: GB-BAYER-2012-052137

PATIENT
  Age: 22 Year
  Sex: Female
  Weight: 82 kg

DRUGS (2)
  1. MIRENA [Suspect]
     Indication: CONTRACEPTION
     Dosage: 20 MCG/24HR, CONT
     Route: 015
     Dates: start: 20120308, end: 20120411
  2. IMPLANON [Concomitant]

REACTIONS (7)
  - OPTIC DISC DISORDER [None]
  - INTRACRANIAL PRESSURE INCREASED [None]
  - TINNITUS [None]
  - VISION BLURRED [None]
  - HEADACHE [None]
  - VISUAL ACUITY REDUCED [None]
  - VISUAL FIELD DEFECT [None]
